FAERS Safety Report 8070096-7 (Version None)
Quarter: 2012Q1

REPORT INFORMATION
  Report Type: 
  Country: None (occurrence: None)
  Receive Date: 20120125
  Receipt Date: 20120110
  Transmission Date: 20120608
  Serious: Yes (Hospitalization)
  Sender: FDA-Public Use
  Company Number: BR-MEDIMMUNE-MEDI-0013120

PATIENT
  Sex: Female
  Weight: 7.13 kg

DRUGS (12)
  1. SYNAGIS [Suspect]
     Route: 030
     Dates: start: 20100302, end: 20100302
  2. SAMBUCUS CH5 WITH KALI MURAIATICUM CH5 [Concomitant]
  3. CARBONIC LIMESTONE CH5 [Concomitant]
  4. HYPERICUM NCH5 [Concomitant]
  5. VITAMIN AD [Concomitant]
     Route: 048
     Dates: start: 20100112
  6. DULCAMARA CH30 [Concomitant]
  7. MENTHA PIPIPERITA CH5 [Concomitant]
  8. CALCEROUS PHOSPHORIC CH5 [Concomitant]
  9. AMMONIUM CARBONICUM CH5 [Concomitant]
  10. ALLINUMS CEPA CH5 [Concomitant]
  11. SYNAGIS [Suspect]
     Indication: BRONCHOPULMONARY DYSPLASIA
     Route: 030
     Dates: start: 20100701, end: 20100701
  12. CALCAREOUS FLUORICA CH5 [Concomitant]

REACTIONS (11)
  - C-REACTIVE PROTEIN INCREASED [None]
  - PYREXIA [None]
  - BRONCHIOLITIS [None]
  - TREMOR [None]
  - COUGH [None]
  - BRONCHOSPASM [None]
  - WEIGHT DECREASED [None]
  - DRUG INEFFECTIVE [None]
  - INFLUENZA [None]
  - CYANOSIS [None]
  - DYSPNOEA [None]
